FAERS Safety Report 9164474 (Version 1)
Quarter: 2013Q1

REPORT INFORMATION
  Report Type: Spontaneous
  Country: US (occurrence: None)
  Receive Date: 20130204
  Receipt Date: 20130204
  Transmission Date: 20140127
  Serious: Yes (Life-Threatening, Other)
  Sender: FDA-Public Use
  Company Number: FK201300237

PATIENT
  Age: 64 Year
  Sex: Male

DRUGS (2)
  1. AMIODARONE HCL [Suspect]
     Indication: ARRHYTHMIA PROPHYLAXIS
     Route: 042
  2. LIDOCAINE (LIDOCAINE) [Concomitant]

REACTIONS (4)
  - Electrocardiogram abnormal [None]
  - Cardiac arrest [None]
  - Ventricular fibrillation [None]
  - Ventricular tachycardia [None]
